FAERS Safety Report 18639227 (Version 1)
Quarter: 2020Q4

REPORT INFORMATION
  Report Type: Spontaneous
  Country: US (occurrence: US)
  Receive Date: 20201218
  Receipt Date: 20201218
  Transmission Date: 20210114
  Serious: No
  Sender: FDA-Public Use
  Company Number: US-TAKEDA-2020TUS058764

PATIENT
  Sex: Female

DRUGS (2)
  1. ALUNBRIG [Suspect]
     Active Substance: BRIGATINIB
     Indication: BRONCHIAL NEOPLASM
     Dosage: 90 MILLIGRAM
     Route: 065
  2. ALUNBRIG [Suspect]
     Active Substance: BRIGATINIB
     Indication: LUNG NEOPLASM MALIGNANT

REACTIONS (1)
  - Bowel movement irregularity [Unknown]
